FAERS Safety Report 23525904 (Version 5)
Quarter: 2024Q2

REPORT INFORMATION
  Report Type: Report from Study
  Country: US (occurrence: US)
  Receive Date: 20240215
  Receipt Date: 20240531
  Transmission Date: 20240716
  Serious: No
  Sender: FDA-Public Use
  Company Number: US-AstraZeneca-CH-00562741A

PATIENT
  Age: 67 Year
  Sex: Female
  Weight: 61.2 kg

DRUGS (3)
  1. STRENSIQ [Suspect]
     Active Substance: ASFOTASE ALFA
     Indication: Hypophosphatasia
     Dosage: 120 MILLIGRAM, Q3W
     Route: 065
     Dates: start: 20220323
  2. VITAMIN D [Concomitant]
     Active Substance: VITAMIN D NOS
     Indication: Vitamin D deficiency
     Dosage: 2000 UNITS
     Route: 065
  3. VITAMIN D3 [Concomitant]
     Active Substance: CHOLECALCIFEROL
     Indication: Product used for unknown indication
     Dosage: 2 DOSAGE FORMS (2000 UNITS), QD
     Route: 048

REACTIONS (13)
  - Fatigue [Unknown]
  - Somnolence [Unknown]
  - Vibration syndrome [Unknown]
  - Hypometabolism [Unknown]
  - Decreased appetite [Unknown]
  - Incontinence [Not Recovered/Not Resolved]
  - Nausea [Unknown]
  - Asthenia [Unknown]
  - Presyncope [Unknown]
  - Palpitations [Unknown]
  - Reflux gastritis [Unknown]
  - Skin reaction [Recovered/Resolved]
  - Vitamin D decreased [Unknown]

NARRATIVE: CASE EVENT DATE: 20230701
